FAERS Safety Report 9729493 (Version 2)
Quarter: 2015Q3

REPORT INFORMATION
  Report Type: Spontaneous
  Country: US (occurrence: US)
  Receive Date: 20131204
  Receipt Date: 20150804
  Transmission Date: 20151125
  Serious: No
  Sender: FDA-Public Use
  Company Number: US-GILEAD-2009-0022003

PATIENT
  Age: 77 Year
  Sex: Female
  Weight: 97.52 kg

DRUGS (15)
  1. ATENOLOL. [Concomitant]
     Active Substance: ATENOLOL
  2. VITAMIN B12 [Concomitant]
     Active Substance: CYANOCOBALAMIN
  3. FISH OIL [Concomitant]
     Active Substance: FISH OIL
  4. LETAIRIS [Suspect]
     Active Substance: AMBRISENTAN
     Indication: PULMONARY ARTERIAL HYPERTENSION
     Route: 048
     Dates: start: 20070922
  5. PRAVACHOL [Concomitant]
     Active Substance: PRAVASTATIN SODIUM
  6. SYNTHROID [Concomitant]
     Active Substance: LEVOTHYROXINE SODIUM
  7. ADVIL [Concomitant]
     Active Substance: IBUPROFEN
  8. CENTRUM SILVER [Concomitant]
     Active Substance: VITAMINS
  9. KLONOPIN [Concomitant]
     Active Substance: CLONAZEPAM
  10. ATACAND [Concomitant]
     Active Substance: CANDESARTAN CILEXETIL
  11. CLARINEX [Concomitant]
     Active Substance: DESLORATADINE
  12. AF-ASPIRIN [Concomitant]
  13. HYDROCHOROTHIAZIDE [Concomitant]
     Active Substance: HYDROCHLOROTHIAZIDE
  14. PATANOL [Concomitant]
     Active Substance: OLOPATADINE HYDROCHLORIDE
  15. CALCIUM WITH D [Concomitant]
     Active Substance: CALCIUM\VITAMIN D

REACTIONS (1)
  - Depression [Unknown]
